FAERS Safety Report 25104177 (Version 1)
Quarter: 2025Q1

REPORT INFORMATION
  Report Type: Report from Study
  Country: IN (occurrence: IN)
  Receive Date: 20250321
  Receipt Date: 20250321
  Transmission Date: 20250409
  Serious: Yes (Death, Other)
  Sender: ALEXION PHARMACEUTICALS
  Company Number: IN-AstraZeneca-CH-00829743A

PATIENT

DRUGS (1)
  1. DURVALUMAB [Suspect]
     Active Substance: DURVALUMAB
     Indication: Small cell lung cancer extensive stage
     Dosage: 1500 MILLIGRAM, Q3W

REACTIONS (7)
  - Drug intolerance [Fatal]
  - General physical health deterioration [Fatal]
  - Bronchitis [Fatal]
  - Lower respiratory tract infection [Fatal]
  - Malignant neoplasm progression [Fatal]
  - Dyspnoea [Fatal]
  - Palpitations [Unknown]
